FAERS Safety Report 5816278-3 (Version None)
Quarter: 2008Q3

REPORT INFORMATION
  Report Type: 
  Country: None (occurrence: None)
  Receive Date: 20080717
  Receipt Date: 20080717
  Transmission Date: 20090109
  Serious: No
  Sender: FDA-Public Use
  Company Number: None

PATIENT
  Sex: Female
  Weight: 55.7924 kg

DRUGS (1)
  1. CATOPRESS -TTS- 3 (CLONIDINE) [Suspect]
     Indication: HYPERTENSION
     Dosage: 1 PATCH WEEKLY
     Dates: start: 20080601

REACTIONS (1)
  - ALOPECIA [None]
